FAERS Safety Report 8591587-6 (Version None)
Quarter: 2012Q3

REPORT INFORMATION
  Report Type: 
  Country: None (occurrence: None)
  Receive Date: 20120814
  Receipt Date: 20120809
  Transmission Date: 20120928
  Serious: No
  Sender: FDA-Public Use
  Company Number: US-PFIZER INC-2012194990

PATIENT
  Age: 41 Year
  Sex: Female
  Weight: 58.957 kg

DRUGS (6)
  1. GEODON [Suspect]
     Indication: PARANOIA
     Dosage: 80 MG, 1X/DAY
     Route: 048
     Dates: start: 20070101, end: 20080101
  2. COGENTIN [Concomitant]
     Indication: FEELING ABNORMAL
  3. XANAX [Concomitant]
     Dosage: HALF OF 0.5MG, UNK
  4. COGENTIN [Concomitant]
     Indication: RESTLESSNESS
     Dosage: UNK
  5. GEODON [Suspect]
     Dosage: 40 MG, 1X/DAY
     Route: 048
     Dates: start: 20110401
  6. GEODON [Suspect]
     Dosage: 80 MG, 1X/DAY
     Route: 048
     Dates: start: 20090101, end: 20110401

REACTIONS (2)
  - WEIGHT INCREASED [None]
  - PARANOIA [None]
